FAERS Safety Report 4899179-7 (Version None)
Quarter: 2006Q1

REPORT INFORMATION
  Report Type: 
  Country: None (occurrence: None)
  Receive Date: 20060131
  Receipt Date: 20060124
  Transmission Date: 20060701
  Serious: No
  Sender: FDA-Public Use
  Company Number: RS005749-E

PATIENT
  Age: 19 Year
  Sex: Male

DRUGS (1)
  1. PARIET (RABEPRAZOLE) (RABEPRAZOLE) [Suspect]
     Dosage: 20 MG, UNKNOWN , ORAL
     Route: 048
     Dates: start: 20050406, end: 20050411

REACTIONS (2)
  - CONDITION AGGRAVATED [None]
  - DEAFNESS [None]
